FAERS Safety Report 6025372-6 (Version None)
Quarter: 2008Q4

REPORT INFORMATION
  Report Type: 
  Country: None (occurrence: None)
  Receive Date: 20081229
  Receipt Date: 20081229
  Transmission Date: 20090506
  Serious: Yes (Hospitalization)
  Sender: FDA-Public Use
  Company Number: None

PATIENT
  Age: 60 Year
  Sex: Male
  Weight: 86.1834 kg

DRUGS (2)
  1. EFFEXOR [Suspect]
     Indication: DEPRESSION
     Dosage: 300 MG DAILY
     Dates: start: 20080115, end: 20081228
  2. TRAMADOL HCL [Suspect]
     Indication: PAIN
     Dosage: 200MG 4 TIMES DAILY

REACTIONS (12)
  - ANXIETY [None]
  - CEREBROVASCULAR ACCIDENT [None]
  - CONFUSIONAL STATE [None]
  - DIZZINESS [None]
  - DRUG WITHDRAWAL SYNDROME [None]
  - HEADACHE [None]
  - HEART RATE IRREGULAR [None]
  - HYPERTENSION [None]
  - MYOCARDIAL INFARCTION [None]
  - PANIC REACTION [None]
  - PARAESTHESIA [None]
  - SEROTONIN SYNDROME [None]
